FAERS Safety Report 9365731 (Version 1)
Quarter: 2013Q2

REPORT INFORMATION
  Report Type: Spontaneous
  Country: US (occurrence: US)
  Receive Date: 20130625
  Receipt Date: 20130625
  Transmission Date: 20140414
  Serious: Yes (Other)
  Sender: FDA-Public Use
  Company Number: US-TEVA-413758USA

PATIENT
  Age: 52 Year
  Sex: Female

DRUGS (1)
  1. QVAR [Suspect]
     Indication: ASTHMA

REACTIONS (1)
  - Urinary tract infection [Not Recovered/Not Resolved]
